FAERS Safety Report 9136094 (Version 1)
Quarter: 2013Q1

REPORT INFORMATION
  Report Type: Spontaneous
  Country: US (occurrence: US)
  Receive Date: 20130304
  Receipt Date: 20130304
  Transmission Date: 20140127
  Serious: No
  Sender: FDA-Public Use
  Company Number: US-ABBOTT-12P-163-0921437-00

PATIENT
  Sex: Male
  Weight: 120.31 kg

DRUGS (2)
  1. ANDROGEL 1% [Suspect]
     Indication: BLOOD TESTOSTERONE DECREASED
     Dosage: 5 GRAM DOSE DAILY, 4 PUMPS
  2. LEVOXYL [Concomitant]
     Indication: THYROID DISORDER

REACTIONS (1)
  - Expired drug administered [Unknown]
